FAERS Safety Report 24993074 (Version 1)
Quarter: 2025Q1

REPORT INFORMATION
  Report Type: Spontaneous
  Country: IT (occurrence: IT)
  Receive Date: 20250221
  Receipt Date: 20250221
  Transmission Date: 20250408
  Serious: Yes (Other)
  Sender: CELLTRION
  Company Number: IT-AMGEN-ITASP2024166426

PATIENT

DRUGS (2)
  1. ADALIMUMAB [Suspect]
     Active Substance: ADALIMUMAB
     Indication: Juvenile idiopathic arthritis
     Dosage: UNK UNK, Q2WK (ADDITIONAL INFORMATION ON DRUG (FREE TEXT): DOSAGE1: UNIT=NOT AVAILABLE)
     Route: 058
  2. ADALIMUMAB [Suspect]
     Active Substance: ADALIMUMAB
     Indication: Uveitis

REACTIONS (1)
  - Uveitis [Unknown]
